FAERS Safety Report 19918176 (Version 1)
Quarter: 2021Q4

REPORT INFORMATION
  Report Type: Spontaneous
  Country: US (occurrence: US)
  Receive Date: 20211005
  Receipt Date: 20211005
  Transmission Date: 20220303
  Serious: No
  Sender: FDA-Public Use
  Company Number: US-TEVA-2021-US-1960018

PATIENT
  Age: 77 Year
  Sex: Female
  Weight: 86.18 kg

DRUGS (17)
  1. QVAR REDIHALER [Suspect]
     Active Substance: BECLOMETHASONE DIPROPIONATE
     Indication: Asthma
     Dosage: 2 PUFFS TWICE A DAY
     Route: 065
     Dates: start: 2021
  2. PREDNISONE [Suspect]
     Active Substance: PREDNISONE
     Route: 065
  3. Mucinex ER [Concomitant]
  4. ASPIRIN [Concomitant]
     Active Substance: ASPIRIN
     Dosage: AT NIGHT
  5. VITAMIN D3 [Concomitant]
     Active Substance: CHOLECALCIFEROL
     Dosage: AT NIGHT
  6. SINGULAIR [Concomitant]
     Active Substance: MONTELUKAST SODIUM
  7. Metoprolol 50 ER [Concomitant]
     Dosage: TWICE A DAY
  8. WELCHOL [Concomitant]
     Active Substance: COLESEVELAM HYDROCHLORIDE
     Dosage: 3 IN MORNING AND 3 AT NIGHT
  9. VITAMIN B12 [Concomitant]
     Active Substance: CYANOCOBALAMIN
     Dosage: ONCE A MONTH
  10. DEXILANT [Concomitant]
     Active Substance: DEXLANSOPRAZOLE
  11. OLMESARTAN [Concomitant]
     Active Substance: OLMESARTAN
     Dosage: ONCE A DAY
  12. HYDROCHLOROTHIAZIDE [Concomitant]
     Active Substance: HYDROCHLOROTHIAZIDE
     Dosage: ONCE A DAY
  13. CALCIUM\MAGNESIUM\VITAMIN D\ZINC [Concomitant]
     Active Substance: CALCIUM\MAGNESIUM\VITAMIN D\ZINC
     Dosage: TWICE A DAY
  14. VITAMINS [Concomitant]
     Active Substance: VITAMINS
  15. FOLIC ACID [Concomitant]
     Active Substance: FOLIC ACID
     Dosage: ONCE A DAY
  16. VITAMIN E [Concomitant]
     Active Substance: .ALPHA.-TOCOPHEROL
     Dosage: ONCE DAY
  17. FLONASE [Concomitant]
     Active Substance: FLUTICASONE PROPIONATE
     Indication: Hypersensitivity
     Dosage: TWICE A DAY

REACTIONS (3)
  - Blood pressure increased [Recovering/Resolving]
  - Headache [Unknown]
  - Heart rate decreased [Unknown]

NARRATIVE: CASE EVENT DATE: 20210101
